FAERS Safety Report 9645670 (Version 1)
Quarter: 2013Q4

REPORT INFORMATION
  Report Type: Spontaneous
  Country: PL (occurrence: PL)
  Receive Date: 20131025
  Receipt Date: 20131025
  Transmission Date: 20140711
  Serious: Yes (Other)
  Sender: FDA-Public Use
  Company Number: PHHY2013PL118590

PATIENT
  Age: 51 Year
  Sex: Female

DRUGS (12)
  1. SIMULECT [Suspect]
     Indication: IMMUNOSUPPRESSION
     Dosage: 20 MG,1ST DAY AND FOURTH DAY
     Dates: start: 20130208, end: 20130211
  2. TACROLIMUS [Suspect]
     Indication: IMMUNOSUPPRESSION
     Dosage: 6 MG, UNK
  3. TACROLIMUS [Suspect]
     Dosage: 11 MG, QD 6 MG + 5 MG
  4. TACROLIMUS [Suspect]
     Dosage: 3 MG, QD
  5. TACROLIMUS [Suspect]
     Dosage: 3 MG, QD 2MG + 1MG
  6. TACROLIMUS [Suspect]
     Dosage: 5 MG, BID
  7. TACROLIMUS [Suspect]
     Dosage: 10 MG, QD, 5 MG + 5 MG
     Dates: start: 20130405
  8. TACROLIMUS [Suspect]
     Dosage: 3 MG, BID
     Dates: start: 20130612
  9. TACROLIMUS [Suspect]
     Dosage: 2 MG, BID
     Dates: start: 20130613, end: 20130615
  10. VALGANCICLOVIR [Concomitant]
     Indication: PROPHYLAXIS AGAINST TRANSPLANT REJECTION
     Dosage: UNK UKN, UNK
  11. MYCOPHENOLATE MOFETIL [Concomitant]
     Indication: IMMUNOSUPPRESSION
     Dosage: 1 G, BID
  12. PREDNISONE [Concomitant]
     Indication: IMMUNOSUPPRESSION
     Dosage: 20 MG, UNK

REACTIONS (16)
  - Renal tubular atrophy [Recovered/Resolved]
  - Renal impairment [Recovered/Resolved]
  - Blood creatinine increased [Recovered/Resolved]
  - Polyuria [Recovered/Resolved]
  - Diabetes mellitus [Recovered/Resolved]
  - Upper respiratory tract infection [Unknown]
  - Blood pressure increased [Recovered/Resolved]
  - Clostridium difficile colitis [Unknown]
  - Immunosuppressant drug level decreased [Unknown]
  - Asthenia [Recovered/Resolved]
  - Tremor [Recovered/Resolved]
  - Chest discomfort [Recovered/Resolved]
  - Abdominal pain upper [Recovered/Resolved]
  - Drug intolerance [Unknown]
  - Diarrhoea [Recovered/Resolved]
  - Anaemia [Recovered/Resolved]
